FAERS Safety Report 11474945 (Version 3)
Quarter: 2016Q1

REPORT INFORMATION
  Report Type: Report from Study
  Country: BR (occurrence: BR)
  Receive Date: 20150908
  Receipt Date: 20160302
  Transmission Date: 20160525
  Serious: Yes (Life-Threatening, Other)
  Sender: FDA-Public Use
  Company Number: BR-GILEAD-2015-0170982

PATIENT
  Age: 38 Year
  Sex: Male
  Weight: 78 kg

DRUGS (4)
  1. ATAZANAVIR [Suspect]
     Active Substance: ATAZANAVIR
     Indication: HIV INFECTION
     Dosage: 300 MG, QD
     Route: 048
     Dates: start: 20140415
  2. FINASTERIDE. [Concomitant]
     Active Substance: FINASTERIDE
     Indication: PRODUCT USED FOR UNKNOWN INDICATION
     Route: 065
  3. EMTRICITABINE/TENOFOVIR DISOPROXIL FUMARATE [Suspect]
     Active Substance: EMTRICITABINE\TENOFOVIR DISOPROXIL
     Indication: HIV INFECTION
     Dosage: 1 DF, QD
     Route: 048
     Dates: start: 20140415
  4. RITONAVIR. [Suspect]
     Active Substance: RITONAVIR
     Indication: HIV INFECTION
     Dosage: 100 MG, QD
     Route: 048
     Dates: start: 20140415

REACTIONS (1)
  - Suicidal ideation [Recovered/Resolved]

NARRATIVE: CASE EVENT DATE: 20150731
